FAERS Safety Report 24376798 (Version 4)
Quarter: 2024Q4

REPORT INFORMATION
  Report Type: Report from Study
  Country: AR (occurrence: AR)
  Receive Date: 20240930
  Receipt Date: 20241125
  Transmission Date: 20250115
  Serious: Yes (Other)
  Sender: NOVARTIS
  Company Number: AR-002147023-NVSC2024AR190593

PATIENT
  Age: 55 Year
  Sex: Female

DRUGS (2)
  1. KESIMPTA [Suspect]
     Active Substance: OFATUMUMAB
     Indication: Multiple sclerosis
     Dosage: 20 MG, QW
     Route: 058
     Dates: start: 20240918
  2. KESIMPTA [Suspect]
     Active Substance: OFATUMUMAB
     Dosage: UNK, THIRD DOSE
     Route: 058
     Dates: start: 20241002

REACTIONS (16)
  - Multiple sclerosis relapse [Unknown]
  - Dizziness [Unknown]
  - Feeling hot [Unknown]
  - Headache [Unknown]
  - Tremor [Unknown]
  - Asthenia [Unknown]
  - Dysstasia [Unknown]
  - Pyrexia [Unknown]
  - Muscle spasms [Unknown]
  - Genito-pelvic pain/penetration disorder [Unknown]
  - Nausea [Unknown]
  - Dry throat [Unknown]
  - Pharyngitis [Unknown]
  - Dysphagia [Unknown]
  - Injection site haemorrhage [Unknown]
  - Injection site bruising [Unknown]

NARRATIVE: CASE EVENT DATE: 20240918
